FAERS Safety Report 19189980 (Version 1)
Quarter: 2021Q2

REPORT INFORMATION
  Report Type: Spontaneous
  Country: US (occurrence: US)
  Receive Date: 20210428
  Receipt Date: 20210428
  Transmission Date: 20210717
  Serious: Yes (Death)
  Sender: FDA-Public Use
  Company Number: None

PATIENT
  Age: 80 Year
  Sex: Female

DRUGS (4)
  1. DOFETILIDE. [Suspect]
     Active Substance: DOFETILIDE
     Indication: ATRIAL FIBRILLATION
     Route: 048
     Dates: start: 20201030, end: 20210401
  2. DOFETILIDE. [Suspect]
     Active Substance: DOFETILIDE
     Indication: ATRIAL FLUTTER
     Route: 048
     Dates: start: 20201030, end: 20210401
  3. N/A [Concomitant]
     Active Substance: UNSPECIFIED INGREDIENT
  4. TAFINLAR [Suspect]
     Active Substance: DABRAFENIB MESYLATE
     Indication: COLON CANCER
     Route: 048
     Dates: start: 20191109, end: 20210401

REACTIONS (1)
  - Death [None]

NARRATIVE: CASE EVENT DATE: 20210401
